FAERS Safety Report 9123581 (Version 6)
Quarter: 2013Q3

REPORT INFORMATION
  Report Type: Spontaneous
  Country: GB (occurrence: None)
  Receive Date: 20130131
  Receipt Date: 20130906
  Transmission Date: 20140515
  Serious: Yes (Hospitalization, Other)
  Sender: FDA-Public Use
  Company Number: US-2013-10103

PATIENT
  Age: 48 Year
  Sex: Male

DRUGS (2)
  1. OPC-41061 [Suspect]
     Indication: CONGENITAL CYSTIC KIDNEY DISEASE
     Route: 048
     Dates: start: 20111108, end: 20130119
  2. PERINDOPRIL (PERINDOPRIL) [Concomitant]

REACTIONS (6)
  - Pyelonephritis [None]
  - Urinary tract infection [None]
  - Condition aggravated [None]
  - Renal cyst infection [None]
  - Dehydration [None]
  - Blood sodium decreased [None]
